FAERS Safety Report 12631492 (Version 2)
Quarter: 2016Q3

REPORT INFORMATION
  Report Type: Spontaneous
  Country: US (occurrence: US)
  Receive Date: 20160808
  Receipt Date: 20160808
  Transmission Date: 20161109
  Serious: No
  Sender: FDA-Public Use
  Company Number: US-BEH-2015054280

PATIENT
  Sex: Female
  Weight: 74 kg

DRUGS (16)
  1. EPIPEN [Concomitant]
     Active Substance: EPINEPHRINE
     Indication: ANAPHYLACTIC REACTION
  2. AMBIEN [Concomitant]
     Active Substance: ZOLPIDEM TARTRATE
  3. ACCOLATE [Concomitant]
     Active Substance: ZAFIRLUKAST
  4. OXYGEN. [Concomitant]
     Active Substance: OXYGEN
  5. CYMBALTA [Concomitant]
     Active Substance: DULOXETINE HYDROCHLORIDE
  6. GEMFIBROZIL. [Concomitant]
     Active Substance: GEMFIBROZIL
  7. CLONAZEPAM. [Concomitant]
     Active Substance: CLONAZEPAM
  8. TRIAMCINOLONE [Concomitant]
     Active Substance: TRIAMCINOLONE
  9. PREVACID [Concomitant]
     Active Substance: LANSOPRAZOLE
  10. VENTOLIN [Concomitant]
     Active Substance: ALBUTEROL SULFATE
  11. HIZENTRA [Suspect]
     Active Substance: HUMAN IMMUNOGLOBULIN G
     Indication: IMMUNODEFICIENCY COMMON VARIABLE
     Dosage: 4 GM 20 ML VIAL
     Route: 058
  12. CALTRATE [Concomitant]
     Active Substance: CALCIUM CARBONATE
  13. PREDNISONE. [Concomitant]
     Active Substance: PREDNISONE
  14. HYDROCODONE-ACETAMINOPHEN [Concomitant]
     Active Substance: ACETAMINOPHEN\HYDROCODONE
  15. SPIRIVA [Concomitant]
     Active Substance: TIOTROPIUM BROMIDE MONOHYDRATE
  16. SERTRALINE [Concomitant]
     Active Substance: SERTRALINE HYDROCHLORIDE

REACTIONS (1)
  - Sinusitis [Unknown]
